FAERS Safety Report 9797555 (Version 1)
Quarter: 2014Q1

REPORT INFORMATION
  Report Type: Spontaneous
  Country: US (occurrence: US)
  Receive Date: 20140106
  Receipt Date: 20140106
  Transmission Date: 20141002
  Serious: No
  Sender: FDA-Public Use
  Company Number: US-009507513-1401USA001101

PATIENT
  Sex: Female

DRUGS (1)
  1. NEXPLANON [Suspect]
     Indication: CONTRACEPTION
     Dosage: 1STANDARD PACKAGE OF PF APPLI OF 1 UNK
     Route: 059
     Dates: start: 201307

REACTIONS (1)
  - Uterine haemorrhage [Not Recovered/Not Resolved]
